FAERS Safety Report 13823031 (Version 1)
Quarter: 2017Q3

REPORT INFORMATION
  Report Type: Spontaneous
  Country: FR (occurrence: FR)
  Receive Date: 20170801
  Receipt Date: 20170801
  Transmission Date: 20171127
  Serious: Yes (Other)
  Sender: FDA-Public Use
  Company Number: FR-BAYER-2017-145094

PATIENT
  Age: 30 Year
  Sex: Female

DRUGS (1)
  1. MIRENA [Suspect]
     Active Substance: LEVONORGESTREL
     Indication: CONTRACEPTION
     Dosage: 20 MCG/24HR, CONT
     Route: 015
     Dates: start: 20130314, end: 20170630

REACTIONS (11)
  - Menstrual disorder [Recovering/Resolving]
  - Fatigue [Recovering/Resolving]
  - Weight increased [Recovering/Resolving]
  - Tendonitis [Recovering/Resolving]
  - Visual impairment [Recovering/Resolving]
  - Abdominal pain [Recovering/Resolving]
  - Stress [Recovering/Resolving]
  - Dyspareunia [Recovering/Resolving]
  - Ovarian cyst [Recovering/Resolving]
  - Breast cyst [Recovering/Resolving]
  - Depressed mood [Recovering/Resolving]

NARRATIVE: CASE EVENT DATE: 201303
